FAERS Safety Report 14231683 (Version 3)
Quarter: 2018Q1

REPORT INFORMATION
  Report Type: Spontaneous
  Country: US (occurrence: US)
  Receive Date: 20171128
  Receipt Date: 20180131
  Transmission Date: 20180508
  Serious: No
  Sender: FDA-Public Use
  Company Number: US-GLAXOSMITHKLINE-US2017179336

PATIENT
  Age: 55 Year
  Sex: Female

DRUGS (21)
  1. AZATHIOPRINE. [Concomitant]
     Active Substance: AZATHIOPRINE
  2. PAROXETINE. [Concomitant]
     Active Substance: PAROXETINE
  3. FIBERCON [Concomitant]
     Active Substance: CALCIUM POLYCARBOPHIL
  4. METAXALONE. [Concomitant]
     Active Substance: METAXALONE
  5. ATORVASTATIN [Concomitant]
     Active Substance: ATORVASTATIN
  6. DOCUSATE [Concomitant]
     Active Substance: DOCUSATE
  7. ACETAMINOPHEN + CODEINE [Concomitant]
     Active Substance: ACETAMINOPHEN\CODEINE PHOSPHATE
  8. CLONAZEPAM. [Concomitant]
     Active Substance: CLONAZEPAM
  9. HYDROXYCHLOROQUINE [Concomitant]
     Active Substance: HYDROXYCHLOROQUINE
  10. ONDANSETRON [Concomitant]
     Active Substance: ONDANSETRON
  11. PREDNISONE. [Concomitant]
     Active Substance: PREDNISONE
  12. POTASSIUM CHLORIDE XR [Concomitant]
  13. VITAMIN D3 [Concomitant]
     Active Substance: CHOLECALCIFEROL
  14. BENLYSTA [Suspect]
     Active Substance: BELIMUMAB
     Indication: SYSTEMIC LUPUS ERYTHEMATOSUS
     Dosage: 200 MG, WE
     Route: 042
  15. PANTOPRAZOLE [Concomitant]
     Active Substance: PANTOPRAZOLE
  16. CALCIUM CITRICUM [Concomitant]
  17. MODAFINIL. [Concomitant]
     Active Substance: MODAFINIL
  18. BENLYSTA [Suspect]
     Active Substance: BELIMUMAB
     Dosage: 200 MG, WE
     Route: 042
  19. VALSARTAN HCT [Concomitant]
     Active Substance: HYDROCHLOROTHIAZIDE\VALSARTAN
  20. ESTROVEN [Concomitant]
     Active Substance: DIETARY SUPPLEMENT
  21. EXCEDRIN [Concomitant]
     Active Substance: ACETAMINOPHEN\ASPIRIN\CAFFEINE

REACTIONS (7)
  - Generalised erythema [Not Recovered/Not Resolved]
  - Injection site pain [Recovered/Resolved]
  - Rhinitis [Recovered/Resolved]
  - Drug dose omission [Unknown]
  - Rash macular [Not Recovered/Not Resolved]
  - Nasal odour [Recovered/Resolved]
  - Injection site erythema [Unknown]

NARRATIVE: CASE EVENT DATE: 201711
